FAERS Safety Report 7307617-5 (Version None)
Quarter: 2011Q1

REPORT INFORMATION
  Report Type: 
  Country: None (occurrence: None)
  Receive Date: 20110223
  Receipt Date: 20110223
  Transmission Date: 20110831
  Serious: No
  Sender: FDA-Public Use
  Company Number: None

PATIENT
  Age: 13 Year
  Sex: Female
  Weight: 40.8237 kg

DRUGS (1)
  1. ALCOHOL SWAB 70% ISOPROPYL ALCOHOL TRIAD GROUP, INC. [Suspect]

REACTIONS (2)
  - ECZEMA [None]
  - IMPETIGO [None]
